FAERS Safety Report 7705710-6 (Version None)
Quarter: 2011Q3

REPORT INFORMATION
  Report Type: 
  Country: None (occurrence: None)
  Receive Date: 20110824
  Receipt Date: 20110818
  Transmission Date: 20111222
  Serious: Yes (Other)
  Sender: FDA-Public Use
  Company Number: US-AMGEN-USASP2011030361

PATIENT
  Age: 64 Year
  Sex: Male
  Weight: 102 kg

DRUGS (5)
  1. ATIVAN [Concomitant]
  2. NPLATE [Suspect]
     Dosage: UNK
  3. PRILOSEC [Concomitant]
  4. PREDNISONE TAB [Concomitant]
  5. NPLATE [Suspect]
     Indication: IDIOPATHIC THROMBOCYTOPENIC PURPURA
     Dosage: 2 A?G/KG, QWK
     Route: 058
     Dates: start: 20101209, end: 20101215

REACTIONS (2)
  - NEOPLASM MALIGNANT [None]
  - ACUTE MYELOID LEUKAEMIA [None]
